FAERS Safety Report 4590858-8 (Version None)
Quarter: 2005Q1

REPORT INFORMATION
  Report Type: 
  Country: None (occurrence: None)
  Receive Date: 20050222
  Receipt Date: 20050222
  Transmission Date: 20050727
  Serious: Yes (Other)
  Sender: FDA-Public Use
  Company Number: None

PATIENT
  Sex: Male
  Weight: 58 kg

DRUGS (5)
  1. CETUXIMAB [Suspect]
  2. PACLITAXEL [Suspect]
     Dosage: 225MG/M2 IV
     Route: 042
     Dates: start: 20050128
  3. CARBOPLATIN [Suspect]
     Dosage: AUC=6
     Dates: start: 20050128
  4. LORTAB [Concomitant]
  5. OXYCONTIN [Concomitant]

REACTIONS (8)
  - APNOEA [None]
  - CARDIO-RESPIRATORY ARREST [None]
  - COMA [None]
  - ENCEPHALOPATHY [None]
  - PULSE ABSENT [None]
  - SHOCK [None]
  - SINUS TACHYCARDIA [None]
  - STREPTOCOCCAL SEPSIS [None]
